FAERS Safety Report 15902126 (Version 2)
Quarter: 2019Q1

REPORT INFORMATION
  Report Type: Spontaneous
  Country: IE (occurrence: IE)
  Receive Date: 20190201
  Receipt Date: 20190307
  Transmission Date: 20190417
  Serious: Yes (Hospitalization, Congenital Anomaly, Other)
  Sender: FDA-Public Use
  Company Number: IE-NOVOPROD-643934

PATIENT
  Sex: Male
  Weight: 2.67 kg

DRUGS (2)
  1. LEVEMIR [Suspect]
     Active Substance: INSULIN DETEMIR
     Indication: GESTATIONAL DIABETES
     Dosage: 10 IU
     Route: 064
     Dates: start: 20180601, end: 20180605
  2. HUMULIN NOS [Concomitant]
     Active Substance: INSULIN HUMAN
     Indication: GESTATIONAL DIABETES
     Dosage: UNK
     Route: 064

REACTIONS (4)
  - Foetal exposure during pregnancy [Recovered/Resolved]
  - Anal atresia [Unknown]
  - Trisomy 21 [Unknown]
  - Premature baby [Unknown]

NARRATIVE: CASE EVENT DATE: 20180601
